FAERS Safety Report 13102906 (Version 2)
Quarter: 2017Q2

REPORT INFORMATION
  Report Type: Spontaneous
  Country: US (occurrence: US)
  Receive Date: 20170110
  Receipt Date: 20170606
  Transmission Date: 20170830
  Serious: No
  Sender: FDA-Public Use
  Company Number: US-ACTELION-A-US2017-148128

PATIENT
  Age: 54 Year
  Sex: Female

DRUGS (12)
  1. TRAZODONE [Concomitant]
     Active Substance: TRAZODONE HYDROCHLORIDE
  2. TRIAMCINOLONE [Concomitant]
     Active Substance: TRIAMCINOLONE
  3. JANUVIA [Concomitant]
     Active Substance: SITAGLIPTIN PHOSPHATE
  4. METFORMIN [Concomitant]
     Active Substance: METFORMIN HYDROCHLORIDE
  5. LISINOPRIL. [Concomitant]
     Active Substance: LISINOPRIL
  6. LINZESS [Concomitant]
     Active Substance: LINACLOTIDE
  7. NAPROXEN. [Concomitant]
     Active Substance: NAPROXEN
  8. TIZANIDINE. [Concomitant]
     Active Substance: TIZANIDINE
  9. GABAPENTIN. [Concomitant]
     Active Substance: GABAPENTIN
  10. PRAVASTATIN. [Concomitant]
     Active Substance: PRAVASTATIN
  11. DULOXETINE. [Concomitant]
     Active Substance: DULOXETINE
  12. VALCHLOR [Suspect]
     Active Substance: MECHLORETHAMINE
     Indication: MYCOSIS FUNGOIDES
     Dosage: UNK
     Route: 061
     Dates: start: 20161202

REACTIONS (5)
  - Application site erosion [Not Recovered/Not Resolved]
  - Application site discolouration [Not Recovered/Not Resolved]
  - Diarrhoea [Unknown]
  - Skin irritation [Unknown]
  - Application site pruritus [Not Recovered/Not Resolved]
